FAERS Safety Report 23600881 (Version 1)
Quarter: 2024Q1

REPORT INFORMATION
  Report Type: Spontaneous
  Country: US (occurrence: None)
  Receive Date: 20240305
  Receipt Date: 20240305
  Transmission Date: 20240410
  Serious: Yes (Other)
  Sender: FDA-Public Use
  Company Number: None

PATIENT
  Age: 7 Year
  Sex: Female
  Weight: 22.5 kg

DRUGS (3)
  1. OSELTAMIVIR PHOSPHATE [Suspect]
     Active Substance: OSELTAMIVIR PHOSPHATE
     Indication: Influenza
     Dosage: 7.5 ML TWICE A DAY ORAL
     Route: 048
     Dates: start: 20240304, end: 20240304
  2. Xyzal prn [Concomitant]
  3. EPIPEN [Concomitant]
     Active Substance: EPINEPHRINE

REACTIONS (10)
  - Vomiting [None]
  - Disorientation [None]
  - Abnormal behaviour [None]
  - Staring [None]
  - Screaming [None]
  - Aphasia [None]
  - Mutism [None]
  - Dysarthria [None]
  - Stupor [None]
  - Amnesia [None]

NARRATIVE: CASE EVENT DATE: 20240304
